FAERS Safety Report 4284695-1 (Version None)
Quarter: 2004Q1

REPORT INFORMATION
  Report Type: 
  Country: None (occurrence: None)
  Receive Date: 20040130
  Receipt Date: 20040105
  Transmission Date: 20041129
  Serious: Yes (Other)
  Sender: FDA-Public Use
  Company Number: WAES 0401ESP00002

PATIENT
  Age: 47 Year
  Sex: Female

DRUGS (12)
  1. CAP APREPITANT 125 MG [Suspect]
     Indication: PROPHYLAXIS
     Dosage: SEE IMAGE
     Route: 048
     Dates: start: 20031204, end: 20031204
  2. CAP APREPITANT 125 MG [Suspect]
     Indication: PROPHYLAXIS
     Dosage: SEE IMAGE
     Route: 048
     Dates: start: 20031205, end: 20031206
  3. CAP APREPITANT 125 MG [Suspect]
     Indication: PROPHYLAXIS
     Dosage: SEE IMAGE
     Route: 048
     Dates: start: 20031229, end: 20031229
  4. CAP APREPITANT 125 MG [Suspect]
     Indication: PROPHYLAXIS
     Dosage: SEE IMAGE
     Route: 048
     Dates: start: 20031230, end: 20031230
  5. CAP PLACEBO (UNSPECIFIED) [Suspect]
     Indication: PROPHYLAXIS OF NAUSEA AND VOMITING
     Dosage: DAILY/PO
     Route: 048
     Dates: start: 20031230, end: 20031230
  6. TAB DEXAMETHASONE 4 MG [Suspect]
     Indication: PROPHYLAXIS OF NAUSEA AND VOMITING
     Dosage: 12 MG/DAILY/PO
     Route: 048
     Dates: start: 20031229, end: 20031229
  7. CAP ONDANSETRON 8 MG [Suspect]
     Indication: PROPHYLAXIS OF NAUSEA AND VOMITING
     Dosage: 8 MG/BID/PO
     Route: 048
     Dates: start: 20031229, end: 20031229
  8. CAP PLACEBO (UNSPECIFIED) [Suspect]
     Indication: PROPHYLAXIS OF NAUSEA AND VOMITING
     Dosage: DAILY/PO
     Route: 048
     Dates: start: 20031205, end: 20031206
  9. TAB DEXAMETHASONE 4 MG [Suspect]
     Indication: PROPHYLAXIS OF NAUSEA AND VOMITING
     Dosage: 12 MG/DAILY/PO
     Route: 048
     Dates: start: 20031204, end: 20031204
  10. CAP ONDANSETRON 8 MG [Suspect]
     Indication: PROPHYLAXIS OF NAUSEA AND VOMITING
     Dosage: 8 MG/BID/PO
     Route: 048
     Dates: start: 20031204, end: 20031204
  11. CYCLOPHOSPHAMIDE (+) EPIRUBICIN [Concomitant]
  12. LORAZEPAM [Concomitant]

REACTIONS (1)
  - RASH ERYTHEMATOUS [None]
